FAERS Safety Report 16229099 (Version 2)
Quarter: 2019Q2

REPORT INFORMATION
  Report Type: Report from Study
  Country: CA (occurrence: CA)
  Receive Date: 20190423
  Receipt Date: 20190424
  Transmission Date: 20190711
  Serious: Yes (Other)
  Sender: FDA-Public Use
  Company Number: CA-HLSUS-2019-CA-000148

PATIENT
  Age: 30 Year
  Sex: Male
  Weight: 86 kg

DRUGS (2)
  1. OLANZAPINE. [Concomitant]
     Active Substance: OLANZAPINE
  2. CLOZAPINE. [Suspect]
     Active Substance: CLOZAPINE
     Dosage: 150MG
     Route: 048
     Dates: start: 20190116, end: 20190206

REACTIONS (7)
  - Eosinophilia [Unknown]
  - Malaise [Unknown]
  - Monocyte count increased [Unknown]
  - White blood cell count increased [Unknown]
  - Depressed mood [Unknown]
  - Fatigue [Unknown]
  - Neutrophil count increased [Unknown]

NARRATIVE: CASE EVENT DATE: 20190131
